FAERS Safety Report 18557806 (Version 1)
Quarter: 2020Q4

REPORT INFORMATION
  Report Type: Spontaneous
  Country: FR (occurrence: FR)
  Receive Date: 20201130
  Receipt Date: 20201130
  Transmission Date: 20210114
  Serious: Yes (Other)
  Sender: FDA-Public Use
  Company Number: FR-TAKEDA-2020TJP025975

PATIENT
  Age: 42 Year
  Sex: Female

DRUGS (4)
  1. DESOGESTREL [Concomitant]
     Active Substance: DESOGESTREL
     Indication: CONTRACEPTION
     Dosage: 0.075 MILLIGRAM
     Route: 048
  2. LEVOTHYROX [Concomitant]
     Active Substance: LEVOTHYROXINE
     Indication: HYPOTHYROIDISM
     Dosage: 100 MICROGRAM, QD
     Route: 048
  3. LANZOR [Suspect]
     Active Substance: LANSOPRAZOLE
     Indication: CHEST PAIN
     Dosage: 15 MILLIGRAM, QD
     Route: 048
     Dates: start: 20200929, end: 20201001
  4. PROFENID [Suspect]
     Active Substance: KETOPROFEN
     Indication: HEADACHE
     Dosage: 100 MILLIGRAM, 1X
     Route: 040
     Dates: start: 20200928, end: 20200928

REACTIONS (1)
  - Hepatitis [Recovering/Resolving]

NARRATIVE: CASE EVENT DATE: 20200930
